FAERS Safety Report 5413757-8 (Version None)
Quarter: 2007Q3

REPORT INFORMATION
  Report Type: 
  Country: None (occurrence: None)
  Receive Date: 20070814
  Receipt Date: 20070810
  Transmission Date: 20080115
  Serious: Yes (Other)
  Sender: FDA-Public Use
  Company Number: DE-BRISTOL-MYERS SQUIBB COMPANY-13874359

PATIENT
  Age: 71 Year
  Sex: Male

DRUGS (2)
  1. CISPLATIN [Suspect]
     Indication: NON-SMALL CELL LUNG CANCER
     Route: 042
     Dates: start: 20060118, end: 20060118
  2. VINORELBINE [Suspect]
     Indication: NON-SMALL CELL LUNG CANCER
     Route: 042
     Dates: start: 20060125, end: 20060125

REACTIONS (7)
  - ARRHYTHMIA [None]
  - ATRIAL FIBRILLATION [None]
  - HYPOKALAEMIA [None]
  - HYPOMAGNESAEMIA [None]
  - MUSCLE SPASMS [None]
  - MUSCULAR WEAKNESS [None]
  - VERTIGO [None]
